FAERS Safety Report 13888213 (Version 1)
Quarter: 2017Q3

REPORT INFORMATION
  Report Type: Spontaneous
  Country: US (occurrence: US)
  Receive Date: 20170821
  Receipt Date: 20170821
  Transmission Date: 20171127
  Serious: Yes (Other)
  Sender: FDA-Public Use
  Company Number: US-BAYER-2017-153499

PATIENT
  Sex: Female

DRUGS (1)
  1. BAYER ASPIRIN 500 MG [Suspect]
     Active Substance: ASPIRIN
     Indication: PAIN
     Dosage: 1 DF, UNK
     Route: 048

REACTIONS (4)
  - Feeling abnormal [Unknown]
  - Abdominal pain upper [Unknown]
  - Drug ineffective [Unknown]
  - Gastric disorder [Unknown]
